FAERS Safety Report 9159281 (Version 1)
Quarter: 2013Q1

REPORT INFORMATION
  Report Type: Spontaneous
  Country: US (occurrence: None)
  Receive Date: 20130212
  Receipt Date: 20130212
  Transmission Date: 20140127
  Serious: Yes (Other)
  Sender: FDA-Public Use
  Company Number: 001476287A

PATIENT
  Age: 31 Year
  Sex: Female

DRUGS (8)
  1. PROACTIV RENEWING CLEANSER [Suspect]
     Indication: ACNE
     Route: 023
     Dates: start: 20120913, end: 20130114
  2. PROACTIV RENEWING CLEANSER [Suspect]
     Indication: ACNE
     Route: 023
     Dates: start: 20120913, end: 20130114
  3. PROACTIV RENEWING CLEANSER [Suspect]
     Route: 023
     Dates: start: 20120913, end: 20130114
  4. PROACTIV REPAIRING TREATMENT [Suspect]
     Route: 023
     Dates: start: 20120913, end: 20130114
  5. PROACTIV DEEP CLEANSING WASH [Suspect]
     Route: 023
     Dates: start: 20120914, end: 20130114
  6. PROACTIV DEEP CLEANSING WASH [Suspect]
     Route: 023
     Dates: start: 20120914, end: 20130114
  7. PROACTIV DEEP CLEANSING WASH [Suspect]
     Route: 023
     Dates: start: 20120914, end: 20130114
  8. ZYRTEC [Concomitant]

REACTIONS (4)
  - Erythema [None]
  - Pruritus [None]
  - Swelling [None]
  - Anaphylactic reaction [None]
